FAERS Safety Report 25684388 (Version 2)
Quarter: 2025Q3

REPORT INFORMATION
  Report Type: Spontaneous
  Country: SG (occurrence: SG)
  Receive Date: 20250815
  Receipt Date: 20250829
  Transmission Date: 20251020
  Serious: Yes (Other)
  Sender: ROCHE
  Company Number: SG-ROCHE-10000359333

PATIENT
  Age: 40 Year
  Sex: Female
  Weight: 67 kg

DRUGS (1)
  1. PHESGO [Suspect]
     Active Substance: HYALURONIDASE-ZZXF\PERTUZUMAB\TRASTUZUMAB
     Indication: Breast cancer
     Route: 042

REACTIONS (6)
  - Breast operation [Unknown]
  - Headache [Unknown]
  - Abdominal pain upper [Unknown]
  - Diarrhoea [Unknown]
  - Dizziness [Unknown]
  - Fatigue [Unknown]
